FAERS Safety Report 10017960 (Version 2)
Quarter: 2014Q3

REPORT INFORMATION
  Report Type: Spontaneous
  Country: US (occurrence: US)
  Receive Date: 20140318
  Receipt Date: 20140702
  Transmission Date: 20150326
  Serious: Yes (Death, Life-Threatening, Hospitalization, Other)
  Sender: FDA-Public Use
  Company Number: US-MERCK-1403USA007853

PATIENT
  Sex: Female
  Weight: 52.2 kg

DRUGS (3)
  1. JANUVIA [Suspect]
     Active Substance: SITAGLIPTIN PHOSPHATE
     Dosage: 100 MG, BID
     Route: 048
     Dates: start: 20080830, end: 20090227
  2. JANUVIA [Suspect]
     Active Substance: SITAGLIPTIN PHOSPHATE
     Dosage: 50 MG, QD
     Route: 048
     Dates: start: 20091112, end: 20120627
  3. JANUVIA [Suspect]
     Active Substance: SITAGLIPTIN PHOSPHATE
     Indication: TYPE 2 DIABETES MELLITUS
     Dosage: 100 MG, QD
     Route: 048
     Dates: start: 20080828, end: 20081027

REACTIONS (30)
  - Electrocardiogram ST-T change [Unknown]
  - Diabetic ketoacidosis [Recovered/Resolved]
  - Leukocytosis [Unknown]
  - Sinus bradycardia [Unknown]
  - Abdominal pain upper [Unknown]
  - Diabetes mellitus inadequate control [Unknown]
  - Cholelithiasis [Unknown]
  - Gallbladder enlargement [Unknown]
  - Cholecystitis acute [Unknown]
  - Malignant hypertension [Unknown]
  - Metastases to liver [Unknown]
  - Abdominal injury [Unknown]
  - Chronic obstructive pulmonary disease [Not Recovered/Not Resolved]
  - Metastases to lung [Unknown]
  - Asthenia [Unknown]
  - Urinary tract infection [Unknown]
  - Balance disorder [Unknown]
  - Anaemia of chronic disease [Unknown]
  - Hyperlipidaemia [Unknown]
  - Diabetic nephropathy [Unknown]
  - Myocardial infarction [Unknown]
  - Hypoalbuminaemia [Unknown]
  - Cachexia [Unknown]
  - Arthralgia [Unknown]
  - Malnutrition [Unknown]
  - Chest injury [Unknown]
  - Cardiac failure congestive [Unknown]
  - Cataract operation [Unknown]
  - Pancreatic carcinoma metastatic [Fatal]
  - Renal failure chronic [Not Recovered/Not Resolved]

NARRATIVE: CASE EVENT DATE: 2008
